FAERS Safety Report 5709022-1 (Version None)
Quarter: 2008Q2

REPORT INFORMATION
  Report Type: 
  Country: None (occurrence: None)
  Receive Date: 20080418
  Receipt Date: 20080318
  Transmission Date: 20081010
  Serious: No
  Sender: FDA-Public Use
  Company Number: US-BAYER-200818253NA

PATIENT
  Age: 29 Year
  Sex: Male

DRUGS (1)
  1. CIPRO [Suspect]
     Indication: DYSURIA
     Route: 048

REACTIONS (4)
  - ARTHRALGIA [None]
  - ARTHROPATHY [None]
  - HYPOAESTHESIA [None]
  - MUSCLE TWITCHING [None]
